FAERS Safety Report 9402563 (Version 4)
Quarter: 2013Q4

REPORT INFORMATION
  Report Type: Spontaneous
  Country: IT (occurrence: FR)
  Receive Date: 20130716
  Receipt Date: 20131210
  Transmission Date: 20140711
  Serious: Yes (Hospitalization)
  Sender: FDA-Public Use
  Company Number: FR-FRI-1000046650

PATIENT
  Age: 80 Year
  Sex: Male

DRUGS (15)
  1. NEBIVOLOL [Suspect]
     Indication: HYPERTENSION
     Dosage: 2.5 MG
     Route: 048
  2. TAZOCILLINE [Suspect]
     Indication: EAR INFECTION
     Dosage: 12 GRAM
     Route: 042
     Dates: start: 20130515, end: 20130619
  3. CIFLOX [Suspect]
     Indication: EAR INFECTION
     Dosage: 1500 MG
     Route: 048
     Dates: start: 20130515, end: 20130524
  4. TAHOR [Suspect]
     Dosage: 80 MG
     Route: 048
  5. KARDEGIC [Suspect]
     Indication: MYOCARDIAL INFARCTION
     Dosage: 75 MG
     Route: 048
  6. OMACOR [Suspect]
     Indication: MYOCARDIAL INFARCTION
     Dosage: 1 GRAM
     Route: 048
  7. OFLOCET [Suspect]
     Indication: EAR INFECTION
     Route: 001
     Dates: start: 20130524, end: 20130612
  8. INIPOMP [Suspect]
     Indication: GASTROOESOPHAGEAL REFLUX DISEASE
     Dosage: 20 MG
     Route: 048
     Dates: start: 20120622, end: 20130506
  9. INIPOMP [Suspect]
     Dosage: 20 MG
     Route: 048
     Dates: start: 20130524, end: 20130624
  10. INEXIUM [Suspect]
     Indication: GASTROOESOPHAGEAL REFLUX DISEASE
     Dates: start: 20130506, end: 20130524
  11. PANTOPRAZOLE [Suspect]
     Indication: GASTROOESOPHAGEAL REFLUX DISEASE
     Dosage: 20 MG
     Route: 048
     Dates: start: 20130524, end: 20130624
  12. AUGMENTIN [Suspect]
     Indication: EAR PAIN
     Dosage: 3 G
     Route: 048
     Dates: start: 20130417, end: 20130427
  13. DIFFU K [Concomitant]
     Dosage: 600 MG
     Route: 048
  14. TRAMADOL [Concomitant]
     Dosage: 100 MG
     Route: 048
  15. TRAMADOL [Concomitant]
     Route: 048

REACTIONS (3)
  - Drug reaction with eosinophilia and systemic symptoms [Unknown]
  - Renal failure acute [Unknown]
  - Hepatic failure [Unknown]
